FAERS Safety Report 7627660-6 (Version None)
Quarter: 2011Q3

REPORT INFORMATION
  Report Type: 
  Country: None (occurrence: None)
  Receive Date: 20110721
  Receipt Date: 20110713
  Transmission Date: 20111222
  Serious: Yes (Other)
  Sender: FDA-Public Use
  Company Number: US-ACTELION-A-US2011-51630

PATIENT

DRUGS (1)
  1. TRACLEER [Suspect]
     Indication: PULMONARY ARTERIAL HYPERTENSION
     Dosage: UNK
     Route: 048
     Dates: start: 20020920

REACTIONS (5)
  - SKIN DISCOLOURATION [None]
  - LIMB DISCOMFORT [None]
  - LIPOMA [None]
  - POOR PERIPHERAL CIRCULATION [None]
  - ABDOMINAL PAIN [None]
